FAERS Safety Report 5974837-1 (Version None)
Quarter: 2008Q4

REPORT INFORMATION
  Report Type: 
  Country: None (occurrence: None)
  Receive Date: 20081201
  Receipt Date: 20081128
  Transmission Date: 20090506
  Serious: Yes (Hospitalization, Other)
  Sender: FDA-Public Use
  Company Number: GB-PFIZER INC-2008101168

PATIENT
  Age: 65 Year
  Sex: Female

DRUGS (4)
  1. XALATAN [Suspect]
     Indication: GLAUCOMA
  2. VENTOLIN [Suspect]
     Indication: ASTHMA
     Route: 055
  3. SERETIDE [Suspect]
     Indication: ASTHMA
     Route: 055
  4. AZOPT [Suspect]
     Indication: GLAUCOMA

REACTIONS (4)
  - ASTHMA [None]
  - COUGH [None]
  - DYSPNOEA [None]
  - LOWER RESPIRATORY TRACT INFECTION [None]
